FAERS Safety Report 6967363-4 (Version None)
Quarter: 2010Q3

REPORT INFORMATION
  Report Type: 
  Country: None (occurrence: None)
  Receive Date: 20100907
  Receipt Date: 20100830
  Transmission Date: 20110219
  Serious: No
  Sender: FDA-Public Use
  Company Number: US-JNJFOC-20100801314

PATIENT
  Sex: Female
  Weight: 97.52 kg

DRUGS (1)
  1. SANDZO FENTANYL TRANSDERMAL SYSTEM [Suspect]
     Indication: CYSTITIS INTERSTITIAL
     Dosage: NDC#: 0781-7241-55
     Route: 062

REACTIONS (2)
  - DRUG ADMINISTERED AT INAPPROPRIATE SITE [None]
  - WRONG TECHNIQUE IN DRUG USAGE PROCESS [None]
